FAERS Safety Report 7637580-9 (Version None)
Quarter: 2011Q3

REPORT INFORMATION
  Report Type: 
  Country: None (occurrence: None)
  Receive Date: 20110726
  Receipt Date: 20110718
  Transmission Date: 20111222
  Serious: Yes (Other)
  Sender: FDA-Public Use
  Company Number: US-PFIZER INC-2011108731

PATIENT
  Age: 45 Year
  Sex: Male
  Weight: 87.528 kg

DRUGS (2)
  1. BENEFIX [Suspect]
     Indication: RECTAL HAEMORRHAGE
     Dosage: 1970 IU, AS NEEDED
     Route: 042
     Dates: start: 20110514, end: 20110516
  2. BENEFIX [Suspect]
     Dosage: 483 IU, AS NEEDED
     Route: 042
     Dates: start: 20110514, end: 20110516

REACTIONS (6)
  - DIZZINESS [None]
  - HOT FLUSH [None]
  - HEART RATE INCREASED [None]
  - HYPERTENSION [None]
  - PRESYNCOPE [None]
  - PALPITATIONS [None]
